FAERS Safety Report 7237198-6 (Version None)
Quarter: 2011Q1

REPORT INFORMATION
  Report Type: 
  Country: None (occurrence: None)
  Receive Date: 20110111
  Receipt Date: 20101228
  Transmission Date: 20110831
  Serious: Yes (Other)
  Sender: FDA-Public Use
  Company Number: DSA_44202_2010

PATIENT
  Sex: Female
  Weight: 53 kg

DRUGS (5)
  1. FLUVOXAMINE (FLUVOXAMINE) [Suspect]
     Dosage: (100 MG)
  2. WELLBUTRIN XL [Suspect]
     Indication: DEPRESSION
     Dosage: (300 MG QD ORAL)
     Route: 048
     Dates: start: 20101010, end: 20101021
  3. ZIPRASIDONE HYDROCHLORIDE [Suspect]
     Indication: SEDATION
     Dosage: (80 MG)
  4. BUPROPION HYDROCHLORIDE [Concomitant]
  5. GEODON [Concomitant]

REACTIONS (3)
  - AGITATION [None]
  - CONVULSION [None]
  - CYANOSIS [None]
